FAERS Safety Report 4455134-2 (Version None)
Quarter: 2004Q3

REPORT INFORMATION
  Report Type: 
  Country: None (occurrence: None)
  Receive Date: 20040907
  Receipt Date: 20040826
  Transmission Date: 20050211
  Serious: Yes (Hospitalization)
  Sender: FDA-Public Use
  Company Number: FR-GLAXOSMITHKLINE-B0343713A

PATIENT
  Age: 91 Year
  Sex: Female

DRUGS (6)
  1. DEROXAT [Suspect]
     Indication: AGITATION
     Route: 048
     Dates: end: 20040418
  2. ATARAX [Suspect]
     Indication: AGITATION
     Route: 048
     Dates: end: 20040418
  3. DIGOXIN [Concomitant]
     Route: 048
  4. NITRIDERM [Concomitant]
     Route: 048
     Dates: end: 20040418
  5. EUPHYLLINE [Concomitant]
     Route: 048
     Dates: end: 20040418
  6. PULMICORT [Concomitant]
     Route: 048
     Dates: end: 20040418

REACTIONS (4)
  - CONFUSIONAL STATE [None]
  - HYPERCAPNIA [None]
  - HYPOXIA [None]
  - SOMNOLENCE [None]
